FAERS Safety Report 9886143 (Version 2)
Quarter: 2014Q1

REPORT INFORMATION
  Report Type: Spontaneous
  Country: JP (occurrence: JP)
  Receive Date: 20140210
  Receipt Date: 20140210
  Transmission Date: 20141002
  Serious: Yes (Death)
  Sender: FDA-Public Use
  Company Number: GXKR2005JP04674

PATIENT
  Age: 71 Year
  Sex: Male

DRUGS (5)
  1. FLUOROURACIL [Suspect]
     Indication: OESOPHAGEAL CARCINOMA
     Dosage: 500 MG/M2, DAILY
  2. HEPARIN [Interacting]
     Dosage: 10000 U, UNK
  3. CISPLATIN [Concomitant]
     Indication: OESOPHAGEAL CARCINOMA
     Dosage: 20 MG/M2, UNK
  4. MITOMYCIN [Concomitant]
     Indication: OESOPHAGEAL CARCINOMA
  5. RADIATION [Concomitant]

REACTIONS (9)
  - Cardiac failure [Fatal]
  - Renal failure [Fatal]
  - Retroperitoneal haematoma [Fatal]
  - Back pain [Fatal]
  - Abdominal tenderness [Fatal]
  - Abdominal pain [Fatal]
  - Abdominal distension [Fatal]
  - Pelvic fluid collection [Fatal]
  - Drug interaction [Fatal]
